FAERS Safety Report 14729532 (Version 3)
Quarter: 2018Q4

REPORT INFORMATION
  Report Type: Report from Study
  Country: US (occurrence: US)
  Receive Date: 20180406
  Receipt Date: 20181019
  Transmission Date: 20190204
  Serious: Yes (Hospitalization)
  Sender: FDA-Public Use
  Company Number: US-ACTELION-A-US2016-130834

PATIENT
  Age: 83 Year
  Sex: Male

DRUGS (3)
  1. TRACLEER [Suspect]
     Active Substance: BOSENTAN
     Dosage: 125 MG, BID
     Route: 048
  2. COUMADIN [Concomitant]
     Active Substance: WARFARIN SODIUM
  3. TRACLEER [Suspect]
     Active Substance: BOSENTAN
     Indication: PULMONARY HYPERTENSION
     Dosage: 125 MG, BID
     Route: 048
     Dates: start: 20090604

REACTIONS (16)
  - Lethargy [Unknown]
  - Malaise [Unknown]
  - Oxygen therapy [Unknown]
  - Pneumonia [Unknown]
  - Dyspnoea [Unknown]
  - Condition aggravated [Unknown]
  - Feeling of despair [Unknown]
  - Dyspnoea at rest [Unknown]
  - Feeling abnormal [Unknown]
  - Fluid retention [Unknown]
  - Fatigue [Unknown]
  - Pulmonary arterial hypertension [Unknown]
  - Thrombosis [Unknown]
  - Asthenia [Unknown]
  - Dyspnoea exertional [Unknown]
  - Seasonal allergy [Unknown]
